FAERS Safety Report 6027470 (Version 2)
Quarter: 2013Q3

REPORT INFORMATION
  Report Type: Spontaneous
  Country: CN (occurrence: None)
  Receive Date: 20060404
  Receipt Date: 20130820
  Transmission Date: 20140515
  Serious: Yes (Other)
  Sender: FDA-Public Use
  Company Number: 2006US-01843

PATIENT
  Age: 82 Year
  Sex: Female

DRUGS (1)
  1. METFORMIN HYDROCHLORIDE [Suspect]
     Indication: DIABETES MELLITUS

REACTIONS (4)
  - Malabsorption [None]
  - Haemoglobin decreased [None]
  - Vitamin B12 deficiency [None]
  - Diarrhoea [None]
